FAERS Safety Report 5416686-9 (Version None)
Quarter: 2007Q3

REPORT INFORMATION
  Report Type: 
  Country: None (occurrence: None)
  Receive Date: 20070816
  Receipt Date: 20070807
  Transmission Date: 20080115
  Serious: Yes (Hospitalization, Other)
  Sender: FDA-Public Use
  Company Number: BE-AMGEN-UK230216

PATIENT
  Sex: Female
  Weight: 60 kg

DRUGS (6)
  1. KEPIVANCE [Suspect]
     Indication: MUCOSAL INFLAMMATION
     Route: 040
     Dates: start: 20070419, end: 20070427
  2. LORAZEPAM [Concomitant]
     Route: 048
     Dates: start: 20070420, end: 20070531
  3. ZESTRIL [Concomitant]
     Route: 048
     Dates: start: 20070510
  4. MELPHALAN [Concomitant]
     Route: 065
  5. ZOFRAN [Concomitant]
     Route: 065
  6. CETIRIZINE HCL [Concomitant]
     Route: 065

REACTIONS (13)
  - ANOREXIA [None]
  - DIARRHOEA [None]
  - FEBRILE NEUTROPENIA [None]
  - GASTRITIS [None]
  - HYPOALBUMINAEMIA [None]
  - LUNG INFILTRATION [None]
  - MOUTH HAEMORRHAGE [None]
  - OESOPHAGITIS [None]
  - SEPSIS [None]
  - SINUSITIS [None]
  - TONGUE DISORDER [None]
  - VENOOCCLUSIVE DISEASE [None]
  - VOMITING [None]
